FAERS Safety Report 19213082 (Version 2)
Quarter: 2022Q2

REPORT INFORMATION
  Report Type: Report from Study
  Country: DE (occurrence: DE)
  Receive Date: 20210504
  Receipt Date: 20220511
  Transmission Date: 20220721
  Serious: Yes (Other)
  Sender: FDA-Public Use
  Company Number: DE-AMGEN-DEUNI2021065083

PATIENT
  Age: 51 Year
  Sex: Male
  Weight: 61 kg

DRUGS (20)
  1. PANITUMUMAB [Suspect]
     Active Substance: PANITUMUMAB
     Indication: Colorectal cancer metastatic
     Dosage: 366 MILLIGRAM
     Route: 042
     Dates: start: 20201014
  2. PANITUMUMAB [Suspect]
     Active Substance: PANITUMUMAB
     Dosage: 370 MILLIGRAM
     Route: 042
     Dates: start: 20201125
  3. PANITUMUMAB [Suspect]
     Active Substance: PANITUMUMAB
     Dosage: 440 MILLIGRAM
     Route: 042
     Dates: start: 20220406
  4. LEUCOVORIN [Suspect]
     Active Substance: LEUCOVORIN
     Indication: Colorectal cancer metastatic
     Dosage: 696 MILLIGRAM
     Route: 065
     Dates: start: 20201014
  5. LEUCOVORIN [Suspect]
     Active Substance: LEUCOVORIN
     Dosage: 396 MILLIGRAM
     Route: 065
     Dates: start: 20201028
  6. LEUCOVORIN [Suspect]
     Active Substance: LEUCOVORIN
     Dosage: 700 MILLIGRAM
     Route: 065
     Dates: start: 20201125
  7. LEUCOVORIN [Suspect]
     Active Substance: LEUCOVORIN
     Dosage: 750 MILLIGRAM
     Route: 065
     Dates: start: 20220406
  8. FLUOROURACIL [Suspect]
     Active Substance: FLUOROURACIL
     Indication: Colorectal cancer metastatic
     Dosage: 696 MILLIGRAM
     Route: 040
     Dates: start: 20201014
  9. FLUOROURACIL [Suspect]
     Active Substance: FLUOROURACIL
     Dosage: 396 MILLIGRAM
     Route: 040
     Dates: start: 20201028
  10. FLUOROURACIL [Suspect]
     Active Substance: FLUOROURACIL
     Dosage: 700 MILLIGRAM
     Route: 040
     Dates: start: 20201125
  11. FLUOROURACIL [Suspect]
     Active Substance: FLUOROURACIL
     Dosage: 4176 MILLIGRAM
     Route: 042
     Dates: start: 20201014
  12. FLUOROURACIL [Suspect]
     Active Substance: FLUOROURACIL
     Dosage: 4180 MILLIGRAM
     Route: 042
     Dates: start: 20201125
  13. FLUOROURACIL [Suspect]
     Active Substance: FLUOROURACIL
     Dosage: 180 MILLIGRAM
     Route: 042
     Dates: start: 20211110
  14. FLUOROURACIL [Suspect]
     Active Substance: FLUOROURACIL
     Dosage: 750 MILLIGRAM
     Route: 040
     Dates: start: 20220406
  15. FLUOROURACIL [Suspect]
     Active Substance: FLUOROURACIL
     Dosage: 4500 MILLIGRAM
     Route: 042
     Dates: start: 20220406
  16. IRINOTECAN [Suspect]
     Active Substance: IRINOTECAN
     Indication: Colorectal cancer metastatic
     Dosage: 313 MILLIGRAM
     Route: 065
     Dates: start: 20201014
  17. IRINOTECAN [Suspect]
     Active Substance: IRINOTECAN
     Dosage: 336 MILLIGRAM
     Route: 065
     Dates: start: 20220406
  18. ERYTHROMYCIN RATIOPHARM [Concomitant]
     Indication: Rash
     Dosage: 50 GRAM, BID
     Route: 062
     Dates: start: 20210111
  19. SODERM [Concomitant]
     Indication: Rash
     Dosage: 1.22 UNK, BID
     Route: 062
     Dates: start: 20210111
  20. DOXYCYCLIN-RATIOPHARM [Concomitant]
     Indication: Rash
     Dosage: 100 MILLIGRAM, BID
     Route: 048
     Dates: start: 20201014

REACTIONS (1)
  - Portal vein thrombosis [Recovered/Resolved]

NARRATIVE: CASE EVENT DATE: 20210414
